FAERS Safety Report 6546212-2 (Version None)
Quarter: 2010Q1

REPORT INFORMATION
  Report Type: 
  Country: None (occurrence: None)
  Receive Date: 20100122
  Receipt Date: 20100111
  Transmission Date: 20100710
  Serious: Yes (Hospitalization)
  Sender: FDA-Public Use
  Company Number: RS-BAYER-200922330GPV

PATIENT
  Age: 36 Year
  Sex: Female
  Weight: 51 kg

DRUGS (4)
  1. CAMPATH [Suspect]
     Indication: MULTIPLE SCLEROSIS
     Route: 042
     Dates: start: 20081222, end: 20081226
  2. CAMPATH [Suspect]
     Route: 042
     Dates: start: 20091228, end: 20091230
  3. METHYLPREDNISOLONE [Concomitant]
     Route: 065
     Dates: start: 20081222, end: 20081224
  4. BROMAZEPAM [Concomitant]
     Indication: INSOMNIA
     Route: 065
     Dates: start: 20090423

REACTIONS (1)
  - PNEUMONITIS [None]
